FAERS Safety Report 7360214-8 (Version None)
Quarter: 2011Q1

REPORT INFORMATION
  Report Type: 
  Country: None (occurrence: None)
  Receive Date: 20110307
  Receipt Date: 20110221
  Transmission Date: 20110831
  Serious: Yes (Hospitalization)
  Sender: FDA-Public Use
  Company Number: 1000018923

PATIENT
  Age: 91 Year
  Sex: Female

DRUGS (8)
  1. BETA-BLOCKERS (BETA-BLOCKERS) [Suspect]
     Indication: ATRIAL FIBRILLATION
     Dates: end: 20110131
  2. SINTROM (ACENOCOUMAROL) (TABLETS) (ACENOCOUMAROL) [Concomitant]
  3. ANTIHYPERTENSIVES (ANTIHYPERTENSIVES) (TABLETS) (ANTIHYPERTENSIVES) [Concomitant]
  4. TRANGOREX (AMIODARONE HYDROCHLORIDE) (TABLETS) (AMIODARONE HYDROCHLORI [Concomitant]
  5. DIURETICS (DIURETICS) (TABLETS) (DIURETICS) [Concomitant]
  6. MEMANTINE [Suspect]
     Indication: COGNITIVE DISORDER
     Dosage: (20 MG (20 MG, 1 IN 1 D), ORAL) (20 MG (20 MG, 1 IN 1 D), ORAL)
     Route: 048
     Dates: start: 20101101, end: 20110131
  7. MEMANTINE [Suspect]
     Indication: COGNITIVE DISORDER
     Dosage: (20 MG (20 MG, 1 IN 1 D), ORAL) (20 MG (20 MG, 1 IN 1 D), ORAL)
     Route: 048
     Dates: start: 20101101, end: 20101101
  8. DIGOXIN [Suspect]
     Indication: CARDIAC FIBRILLATION
     Dates: end: 20110131

REACTIONS (2)
  - TACHYCARDIA [None]
  - BRADYCARDIA [None]
